FAERS Safety Report 14869855 (Version 8)
Quarter: 2018Q4

REPORT INFORMATION
  Report Type: Spontaneous
  Country: ES (occurrence: ES)
  Receive Date: 20180509
  Receipt Date: 20181213
  Transmission Date: 20190204
  Serious: Yes (Hospitalization, Other)
  Sender: FDA-Public Use
  Company Number: ES-PFIZER INC-2018187859

PATIENT
  Age: 87 Year
  Sex: Male

DRUGS (15)
  1. ROCOZ [SIMVASTATIN] [Concomitant]
     Dosage: 25 MG, TID (2-2-1)
     Route: 065
  2. BREAKYL [Suspect]
     Active Substance: FENTANYL
     Indication: DYSPNOEA
     Dosage: UNK
     Route: 048
     Dates: start: 201801
  3. VILDAGLIPTIN [Suspect]
     Active Substance: VILDAGLIPTIN
     Indication: TYPE 2 DIABETES MELLITUS
     Dosage: 50 MG, 2X/DAY
     Route: 048
  4. VILDAGLIPTIN [Suspect]
     Active Substance: VILDAGLIPTIN
     Dosage: 1 DF, 1X/DAY (QD)
     Route: 048
  5. LATANOPROST. [Suspect]
     Active Substance: LATANOPROST
     Dosage: 2 GTT, QD, DRUG INTERVAL DOSAGE UNIT NUMBER:1 DAY
     Route: 065
  6. FLUOXETINA COMBIX 20 MG CAPSULAS DURAS EFG [Suspect]
     Active Substance: FLUOXETINE HYDROCHLORIDE
     Dosage: 20 MG, QD, DRUG INTERVAL DOSAGE UNIT NUMBER:1 DAY
     Route: 065
  7. BUDESONIDE. [Suspect]
     Active Substance: BUDESONIDE
     Dosage: 1 DF, 2X/DAY
     Route: 045
  8. COMBIPRASAL [Suspect]
     Active Substance: ALBUTEROL SULFATE\IPRATROPIUM BROMIDE
     Dosage: 1 DF, Q6H, DRUG INTERVAL DOSAGE UNIT NUMBER:6HOUR
     Route: 045
  9. IPRATROPIUM BROMIDE AND ALBUTEROL SULFATE [Suspect]
     Active Substance: ALBUTEROL SULFATE\IPRATROPIUM BROMIDE
     Dosage: 1 DF, EVERY 6 HOURS
     Route: 045
  10. FUROSEMIDUM [FUROSEMIDE] [Suspect]
     Active Substance: FUROSEMIDE
     Dosage: 40 MG, QD, DRUG INTERVAL DOSAGE UNIT NUMBER:1 DAY
     Route: 065
  11. MIRABEGRON [Suspect]
     Active Substance: MIRABEGRON
     Dosage: 1 DF, QD, DRUG INTERVAL DOSAGE UNIT NUMBER:1 DAY
     Route: 065
  12. XILIARX [Concomitant]
     Active Substance: VILDAGLIPTIN
     Dosage: 50 MG, BID
     Route: 065
  13. APIXABAN [Suspect]
     Active Substance: APIXABAN
     Indication: CEREBROVASCULAR ACCIDENT PROPHYLAXIS
     Dosage: 2.5 MG, BID, DRUG INTERVAL DOSAGE UNIT NUMBER:1 DAY
     Route: 065
  14. QUETIAPINA [QUETIAPINE] [Suspect]
     Active Substance: QUETIAPINE
     Dosage: 25 MG, TID (2-2-1), DRUG INTERVAL DOSAGE UNIT NUMBER:1 DAY
     Route: 065
  15. SEGURIL [Concomitant]
     Active Substance: FUROSEMIDE
     Dosage: 40 MG, QD
     Route: 065

REACTIONS (14)
  - Respiratory failure [Recovered/Resolved]
  - Lung infection [Unknown]
  - Peripheral venous disease [Unknown]
  - Haemoglobin abnormal [Unknown]
  - White blood cell count abnormal [Unknown]
  - Arrhythmia [Unknown]
  - Blood pressure abnormal [Unknown]
  - Dyspnoea [Recovered/Resolved]
  - Bronchiectasis [Unknown]
  - Bone marrow oedema [Unknown]
  - C-reactive protein abnormal [Unknown]
  - Tachypnoea [Unknown]
  - Heart rate abnormal [Unknown]
  - Oedema peripheral [Unknown]
